FAERS Safety Report 8412786-X (Version None)
Quarter: 2012Q2

REPORT INFORMATION
  Report Type: 
  Country: None (occurrence: None)
  Receive Date: 20120531
  Receipt Date: 20120531
  Transmission Date: 20120825
  Serious: Yes (Life-Threatening, Hospitalization)
  Sender: FDA-Public Use
  Company Number: None

PATIENT
  Age: 40 Year
  Sex: Female
  Weight: 86.1834 kg

DRUGS (1)
  1. LO LOESTRIN FE [Suspect]
     Indication: OVARIAN CYST
     Dosage: 1 PILL DAILY PO
     Route: 048
     Dates: start: 20120423, end: 20120523

REACTIONS (1)
  - PULMONARY EMBOLISM [None]
